FAERS Safety Report 7835106-8 (Version None)
Quarter: 2011Q4

REPORT INFORMATION
  Report Type: 
  Country: None (occurrence: None)
  Receive Date: 20111024
  Receipt Date: 20111011
  Transmission Date: 20120403
  Serious: Yes (Other)
  Sender: FDA-Public Use
  Company Number: CA-ELI_LILLY_AND_COMPANY-CA201110002416

PATIENT
  Sex: Female

DRUGS (6)
  1. LORAZEPAM [Concomitant]
  2. ZYBAN [Concomitant]
  3. DOMPERIDONE [Concomitant]
  4. ZYPREXA ZYDIS [Suspect]
     Dosage: 10 MG, EACH EVENING
     Dates: start: 20070528, end: 20100120
  5. CONCERTA [Concomitant]
  6. CITALOPRAM [Concomitant]

REACTIONS (1)
  - WEIGHT INCREASED [None]
